FAERS Safety Report 13558358 (Version 1)
Quarter: 2017Q2

REPORT INFORMATION
  Report Type: Spontaneous
  Country: US (occurrence: US)
  Receive Date: 20170518
  Receipt Date: 20170518
  Transmission Date: 20170830
  Serious: Yes (Disabling)
  Sender: FDA-Public Use
  Company Number: None

PATIENT
  Age: 74 Year
  Sex: Female
  Weight: 81 kg

DRUGS (11)
  1. ASTORVASTATIN [Concomitant]
  2. MAGNESIUM [Concomitant]
     Active Substance: MAGNESIUM
  3. CIPRO [Suspect]
     Active Substance: CIPROFLOXACIN HYDROCHLORIDE
     Indication: PROPHYLAXIS URINARY TRACT INFECTION
     Dosage: ?          QUANTITY:1 TABLET(S);?
     Route: 048
     Dates: start: 20140502, end: 20170503
  4. LEVOTHYROXIN [Concomitant]
     Active Substance: LEVOTHYROXINE
  5. ONE-A-DAY NOS [Concomitant]
     Active Substance: MINERALS\VITAMINS
  6. RANITIDINE. [Concomitant]
     Active Substance: RANITIDINE
  7. IBUPROFEN. [Concomitant]
     Active Substance: IBUPROFEN
  8. BIOTIN [Concomitant]
     Active Substance: BIOTIN
  9. PRAMIPEXOLE. [Concomitant]
     Active Substance: PRAMIPEXOLE
  10. DULOXETINE. [Concomitant]
     Active Substance: DULOXETINE
  11. TYLENOL [Concomitant]
     Active Substance: ACETAMINOPHEN

REACTIONS (11)
  - Tendon pain [None]
  - Middle insomnia [None]
  - Pain in extremity [None]
  - Abasia [None]
  - Tendonitis [None]
  - Sinusitis [None]
  - Product label issue [None]
  - Neuropathy peripheral [None]
  - Drug prescribing error [None]
  - Foot deformity [None]
  - Drug ineffective [None]

NARRATIVE: CASE EVENT DATE: 20141001
